FAERS Safety Report 6150068-X (Version None)
Quarter: 2009Q2

REPORT INFORMATION
  Report Type: 
  Country: None (occurrence: None)
  Receive Date: 20090407
  Receipt Date: 20090407
  Transmission Date: 20091009
  Serious: No
  Sender: FDA-Public Use
  Company Number: None

PATIENT
  Age: 58 Year
  Sex: Female

DRUGS (1)
  1. PROVIGIL [Suspect]
     Dosage: 100MG QAM

REACTIONS (4)
  - ANXIETY [None]
  - HEADACHE [None]
  - IRRITABILITY [None]
  - PHARYNGEAL OEDEMA [None]
